FAERS Safety Report 22613473 (Version 2)
Quarter: 2023Q2

REPORT INFORMATION
  Report Type: Spontaneous
  Country: CN (occurrence: None)
  Receive Date: 20230619
  Receipt Date: 20230628
  Transmission Date: 20230721
  Serious: Yes (Life-Threatening, Hospitalization, Other)
  Sender: FDA-Public Use
  Company Number: CN-ROCHE-3370788

PATIENT
  Age: 16 Year
  Sex: Female
  Weight: 51 kg

DRUGS (7)
  1. MABTHERA [Suspect]
     Active Substance: RITUXIMAB
     Indication: Primary mediastinal large B-cell lymphoma
     Route: 065
     Dates: start: 20230405, end: 20230405
  2. ETOPOSIDE [Suspect]
     Active Substance: ETOPOSIDE
     Indication: Primary mediastinal large B-cell lymphoma
     Route: 065
     Dates: start: 20230410, end: 20230414
  3. CYCLOPHOSPHAMIDE [Suspect]
     Active Substance: CYCLOPHOSPHAMIDE
     Indication: Primary mediastinal large B-cell lymphoma
     Route: 041
     Dates: start: 20230410, end: 20230410
  4. VINDESINE SULFATE [Suspect]
     Active Substance: VINDESINE SULFATE
     Indication: Primary mediastinal large B-cell lymphoma
     Route: 065
     Dates: start: 20230410, end: 20230414
  5. DOXORUBICIN HYDROCHLORIDE [Suspect]
     Active Substance: DOXORUBICIN HYDROCHLORIDE
     Indication: Primary mediastinal large B-cell lymphoma
     Route: 065
     Dates: start: 20230406, end: 20230414
  6. PREDNISOLONE [Concomitant]
     Active Substance: PREDNISOLONE
     Indication: Primary mediastinal large B-cell lymphoma
     Route: 041
     Dates: start: 20230405, end: 20230411
  7. MESNA [Concomitant]
     Active Substance: MESNA
     Indication: Primary mediastinal large B-cell lymphoma
     Route: 042
     Dates: start: 20230410, end: 20230410

REACTIONS (2)
  - Agranulocytosis [Recovering/Resolving]
  - White blood cell count decreased [Recovering/Resolving]

NARRATIVE: CASE EVENT DATE: 20230415
